FAERS Safety Report 4549423-0 (Version None)
Quarter: 2005Q1

REPORT INFORMATION
  Report Type: 
  Country: None (occurrence: None)
  Receive Date: 20050111
  Receipt Date: 20050104
  Transmission Date: 20050727
  Serious: Yes (Death, Hospitalization)
  Sender: FDA-Public Use
  Company Number: 200510036FR

PATIENT
  Age: 84 Year
  Sex: Female

DRUGS (5)
  1. LOVENOX [Suspect]
     Indication: BRONCHITIS
     Route: 058
     Dates: start: 20041201
  2. CELESTENE [Suspect]
     Indication: BRONCHITIS
     Dates: start: 20041201
  3. NETROMYCIN [Suspect]
     Indication: BRONCHITIS
     Dates: start: 20041201
  4. SURBRONC [Suspect]
     Indication: BRONCHITIS
     Dates: start: 20041201
  5. CIFLOX [Suspect]
     Indication: BRONCHITIS
     Route: 048
     Dates: start: 20041201

REACTIONS (4)
  - MULTI-ORGAN FAILURE [None]
  - RESPIRATORY DISTRESS [None]
  - STAPHYLOCOCCAL SEPSIS [None]
  - TOXIC EPIDERMAL NECROLYSIS [None]
